FAERS Safety Report 26153484 (Version 1)
Quarter: 2025Q4

REPORT INFORMATION
  Report Type: Spontaneous
  Country: US (occurrence: US)
  Receive Date: 20251214
  Receipt Date: 20251214
  Transmission Date: 20260117
  Serious: No
  Sender: MYLAN
  Company Number: US-MYLANLABS-2025M1099889

PATIENT
  Sex: Male

DRUGS (2)
  1. WIXELA INHUB [Suspect]
     Active Substance: FLUTICASONE PROPIONATE\SALMETEROL XINAFOATE
     Indication: Seasonal allergy
     Dosage: 500 PER 50 MICROGRAM, BID (TWICE DAILY)
     Dates: start: 2025
  2. WIXELA INHUB [Suspect]
     Active Substance: FLUTICASONE PROPIONATE\SALMETEROL XINAFOATE
     Indication: Bronchitis

REACTIONS (3)
  - Device use issue [Unknown]
  - Device difficult to use [Unknown]
  - Product design issue [Unknown]

NARRATIVE: CASE EVENT DATE: 20250101
